FAERS Safety Report 25664379 (Version 1)
Quarter: 2025Q3

REPORT INFORMATION
  Report Type: Spontaneous
  Country: EU (occurrence: EU)
  Receive Date: 20250811
  Receipt Date: 20250811
  Transmission Date: 20251021
  Serious: Yes (Other)
  Sender: TEVA
  Company Number: None

PATIENT
  Sex: Female

DRUGS (3)
  1. CLOZAPINE [Suspect]
     Active Substance: CLOZAPINE
     Indication: Wrong patient
     Route: 048
     Dates: start: 20250628, end: 20250628
  2. LORAZEPAM [Suspect]
     Active Substance: LORAZEPAM
     Indication: Wrong patient
     Route: 048
     Dates: start: 20250628, end: 20250628
  3. MELATONIN [Suspect]
     Active Substance: MELATONIN
     Indication: Wrong patient
     Route: 048
     Dates: start: 20250628, end: 20250628

REACTIONS (3)
  - Coma [Recovered/Resolved]
  - Wrong patient received product [Recovered/Resolved]
  - Oxygen saturation decreased [Recovered/Resolved]

NARRATIVE: CASE EVENT DATE: 20250628
